FAERS Safety Report 23587770 (Version 2)
Quarter: 2024Q2

REPORT INFORMATION
  Report Type: Spontaneous
  Country: US (occurrence: US)
  Receive Date: 20240301
  Receipt Date: 20240520
  Transmission Date: 20240716
  Serious: No
  Sender: FDA-Public Use
  Company Number: US-SANOFI-01959612

PATIENT
  Age: 78 Year
  Sex: Male

DRUGS (3)
  1. APIDRA SOLOSTAR [Suspect]
     Active Substance: INSULIN GLULISINE
     Indication: Type 1 diabetes mellitus
     Dosage: UNK
     Route: 058
  2. LANTUS [Concomitant]
     Active Substance: INSULIN GLARGINE
  3. ADMELOG [Concomitant]
     Active Substance: INSULIN LISPRO

REACTIONS (3)
  - Blood glucose abnormal [Unknown]
  - Therapeutic response decreased [Unknown]
  - Product storage error [Unknown]
